FAERS Safety Report 11398097 (Version 3)
Quarter: 2015Q4

REPORT INFORMATION
  Report Type: Report from Study
  Country: ES (occurrence: ES)
  Receive Date: 20150820
  Receipt Date: 20151109
  Transmission Date: 20160304
  Serious: Yes (Other)
  Sender: FDA-Public Use
  Company Number: ES-AMGEN-ESPSL2015083509

PATIENT
  Age: 56 Year
  Sex: Female

DRUGS (2)
  1. IDEOS [Concomitant]
     Active Substance: CALCIUM CARBONATE\CHOLECALCIFEROL
  2. PROLIA [Suspect]
     Active Substance: DENOSUMAB
     Indication: OSTEOPOROSIS
     Dosage: 60 MG, Q6MO
     Route: 058
     Dates: start: 20140603, end: 20150615

REACTIONS (9)
  - Discomfort [Recovered/Resolved]
  - Abdominal pain [Recovered/Resolved]
  - Vulvovaginal discomfort [Recovering/Resolving]
  - Proctalgia [Unknown]
  - Chills [Recovered/Resolved]
  - Urinary tract infection [Recovering/Resolving]
  - Gastric ulcer [Unknown]
  - Renal disorder [Unknown]
  - Abdominal discomfort [Recovered/Resolved]

NARRATIVE: CASE EVENT DATE: 20150618
